FAERS Safety Report 14180931 (Version 1)
Quarter: 2017Q4

REPORT INFORMATION
  Report Type: Spontaneous
  Country: US (occurrence: US)
  Receive Date: 20171110
  Receipt Date: 20171110
  Transmission Date: 20180321
  Serious: No
  Sender: FDA-Public Use
  Company Number: None

PATIENT
  Age: 56 Year
  Sex: Male
  Weight: 90 kg

DRUGS (2)
  1. ASPIRIN. [Concomitant]
     Active Substance: ASPIRIN
  2. NAPROXEN DR 500 [Suspect]
     Active Substance: NAPROXEN
     Indication: INFLAMMATION
     Dosage: ?          QUANTITY:60 TABLET(S);?
     Route: 048
     Dates: start: 20171030, end: 20171109

REACTIONS (4)
  - Asthma [None]
  - Depression [None]
  - Anxiety [None]
  - Chest discomfort [None]

NARRATIVE: CASE EVENT DATE: 20171110
